FAERS Safety Report 4358003-1 (Version None)
Quarter: 2004Q2

REPORT INFORMATION
  Report Type: 
  Country: None (occurrence: None)
  Receive Date: 20040511
  Receipt Date: 20040427
  Transmission Date: 20050107
  Serious: Yes (Hospitalization)
  Sender: FDA-Public Use
  Company Number: B0331847A

PATIENT
  Age: 37 Year
  Sex: Male

DRUGS (8)
  1. EPIVIR [Suspect]
     Indication: HEPATIC CIRRHOSIS
     Dates: start: 19970801
  2. TACROLIMUS [Concomitant]
  3. METHYLPREDNISOLONE [Concomitant]
  4. PREDNISOLONE [Concomitant]
  5. FAMCICLOVIR [Concomitant]
  6. ADEFOVIR DIPIVOXIL [Concomitant]
  7. CARNITINE [Concomitant]
  8. HEPATITIS B IMMUNOGLOBUL [Concomitant]

REACTIONS (10)
  - GRAFT INFECTION [None]
  - HBV DNA INCREASED [None]
  - HEPATIC FIBROSIS [None]
  - HEPATITIS B ANTIBODY POSITIVE [None]
  - HEPATITIS CHOLESTATIC [None]
  - LIVER TRANSPLANT [None]
  - PROTHROMBIN TIME PROLONGED [None]
  - TRANSPLANT FAILURE [None]
  - TRANSPLANT REJECTION [None]
  - VIRAL MUTATION IDENTIFIED [None]
